FAERS Safety Report 21404978 (Version 2)
Quarter: 2022Q4

REPORT INFORMATION
  Report Type: Report from Study
  Country: US (occurrence: US)
  Receive Date: 20221003
  Receipt Date: 20221201
  Transmission Date: 20230113
  Serious: No
  Sender: FDA-Public Use
  Company Number: US-ACADIA PHARMACEUTICALS INC.-ACA-2022-PIM-003070

PATIENT
  Sex: Male

DRUGS (22)
  1. NUPLAZID [Suspect]
     Active Substance: PIMAVANSERIN TARTRATE
     Indication: Parkinson^s disease psychosis
     Dosage: 34 MILLIGRAM, QD
     Route: 065
  2. AZELASTINE [Concomitant]
     Active Substance: AZELASTINE
     Dosage: 15 MILLIGRAM, BID
  3. CARBIDOPA\LEVODOPA [Concomitant]
     Active Substance: CARBIDOPA\LEVODOPA
     Dosage: 25-100 MG, 3PILL 4 TIMES A DAY
  4. MEMANTINE [Concomitant]
     Active Substance: MEMANTINE
     Dosage: 10 MILLIGRAM, BID
  5. NOURIANZ [Concomitant]
     Active Substance: ISTRADEFYLLINE
     Dosage: 20 MILLIGRAM, BID
  6. PREGABALIN [Concomitant]
     Active Substance: PREGABALIN
     Dosage: 50 MILLIGRAM, TID
  7. RIVASTIGMINE [Concomitant]
     Active Substance: RIVASTIGMINE
     Dosage: 13.3 MG QD
  8. FINASTERIDE [Concomitant]
     Active Substance: FINASTERIDE
  9. PRAVASTATIN [Concomitant]
     Active Substance: PRAVASTATIN
     Dosage: 80 MILLIGRAM, QD
  10. QUETIAPINE [Concomitant]
     Active Substance: QUETIAPINE
     Dosage: 50 MILLIGRAM
  11. TAMSULOSIN [Concomitant]
     Active Substance: TAMSULOSIN
     Dosage: 0.4MG, QD
  12. ASPIRIN [Concomitant]
     Active Substance: ASPIRIN
     Dosage: 81 MILLIGRAM
  13. CALCIUM\CHOLECALCIFEROL [Concomitant]
     Active Substance: CALCIUM\CHOLECALCIFEROL
  14. COLACE [Concomitant]
     Active Substance: DOCUSATE SODIUM
  15. METAMUCIL [Concomitant]
     Active Substance: PLANTAGO SEED
  16. MIRALAX [Concomitant]
     Active Substance: POLYETHYLENE GLYCOL 3350
  17. MELATONIN [Concomitant]
     Active Substance: MELATONIN
  18. VITAMINS NOS [Concomitant]
     Active Substance: VITAMINS
  19. VITAMIN D3 [Concomitant]
     Active Substance: CHOLECALCIFEROL
  20. MOMETASONE FUROATE [Concomitant]
     Active Substance: MOMETASONE FUROATE
  21. BUSPIRONE [Concomitant]
     Active Substance: BUSPIRONE HYDROCHLORIDE
     Dosage: 15 MILLIGRAM, BID
  22. TOPROLOL AM [Concomitant]
     Dosage: 50 MILLIGRAM, QD

REACTIONS (1)
  - Hallucination [Not Recovered/Not Resolved]
